FAERS Safety Report 4622129-5 (Version None)
Quarter: 2005Q1

REPORT INFORMATION
  Report Type: 
  Country: None (occurrence: None)
  Receive Date: 20050328
  Receipt Date: 20050317
  Transmission Date: 20050727
  Serious: Yes (Death)
  Sender: FDA-Public Use
  Company Number: MEDI-0002999

PATIENT
  Age: 10 Month
  Sex: Male
  Weight: 9.5 kg

DRUGS (1)
  1. SYNAGIS [Suspect]
     Indication: ANTIVIRAL PROPHYLAXIS
     Dosage: 150 MG, 1 IN 30 D, INTRAMUSCULAR
     Route: 030
     Dates: start: 20041204, end: 20050111

REACTIONS (1)
  - RESPIRATORY SYNCYTIAL VIRUS INFECTION [None]
